FAERS Safety Report 13717034 (Version 1)
Quarter: 2017Q3

REPORT INFORMATION
  Report Type: Spontaneous
  Country: US (occurrence: US)
  Receive Date: 20170704
  Receipt Date: 20170704
  Transmission Date: 20171127
  Serious: Yes (Disabling)
  Sender: FDA-Public Use
  Company Number: None

PATIENT
  Age: 55 Year
  Sex: Female
  Weight: 72.9 kg

DRUGS (6)
  1. VITAMIN D [Concomitant]
     Active Substance: CHOLECALCIFEROL
  2. CALCIUM [Concomitant]
     Active Substance: CALCIUM
  3. OMEGA 3 [Concomitant]
     Active Substance: OMEGA-3 FATTY ACIDS
  4. MAGNESIUM [Concomitant]
     Active Substance: MAGNESIUM
  5. VITAMIN C [Concomitant]
     Active Substance: ASCORBIC ACID
  6. KLONOPIN [Suspect]
     Active Substance: CLONAZEPAM
     Indication: INSOMNIA
     Route: 048

REACTIONS (17)
  - Impaired work ability [None]
  - Insomnia [None]
  - Nasal congestion [None]
  - Cognitive disorder [None]
  - Psychomotor skills impaired [None]
  - Withdrawal syndrome [None]
  - Nocturia [None]
  - Feeling of body temperature change [None]
  - Weight increased [None]
  - Ear discomfort [None]
  - Muscle spasms [None]
  - Middle insomnia [None]
  - Fatigue [None]
  - Vision blurred [None]
  - Rhinorrhoea [None]
  - Irritability [None]
  - Frustration tolerance decreased [None]

NARRATIVE: CASE EVENT DATE: 20151010
